FAERS Safety Report 8375905-X (Version None)
Quarter: 2012Q1

REPORT INFORMATION
  Report Type: 
  Country: None (occurrence: None)
  Receive Date: 20120323
  Receipt Date: 20111019
  Transmission Date: 20120608
  Serious: Yes (Hospitalization)
  Sender: FDA-Public Use
  Company Number: 163-21880-11080025

PATIENT
  Age: 42 Year
  Sex: Female

DRUGS (4)
  1. DECADRON [Concomitant]
  2. VELCADE [Concomitant]
  3. REVLIMID [Suspect]
     Indication: MULTIPLE MYELOMA
     Dosage: 25 MG, DAILY FOR 21 DAYS OF 28 DAYS, PO, 15 MG, DAILY, PO
     Route: 048
     Dates: start: 20110817, end: 20110819
  4. REVLIMID [Suspect]
     Indication: MULTIPLE MYELOMA
     Dosage: 25 MG, DAILY FOR 21 DAYS OF 28 DAYS, PO, 15 MG, DAILY, PO
     Route: 048
     Dates: start: 20110701, end: 20110722

REACTIONS (8)
  - SWELLING [None]
  - INFLUENZA LIKE ILLNESS [None]
  - DRUG INTOLERANCE [None]
  - DISTURBANCE IN ATTENTION [None]
  - DECREASED APPETITE [None]
  - PARAESTHESIA [None]
  - TOXICITY TO VARIOUS AGENTS [None]
  - HYPOAESTHESIA [None]
